FAERS Safety Report 5414216-9 (Version None)
Quarter: 2007Q3

REPORT INFORMATION
  Report Type: 
  Country: None (occurrence: None)
  Receive Date: 20070814
  Receipt Date: 20070802
  Transmission Date: 20080115
  Serious: Yes (Other)
  Sender: FDA-Public Use
  Company Number: BR-PFIZER INC-2007065302

PATIENT
  Age: 28 Year
  Sex: Female

DRUGS (10)
  1. EXUBERA [Suspect]
     Indication: TYPE 1 DIABETES MELLITUS
     Route: 055
  2. INSULIN GLARGINE [Concomitant]
  3. INSULIN LISPRO [Concomitant]
  4. LOSARTAN POTASSIUM [Concomitant]
  5. ENALAPRIL MALEATE [Concomitant]
  6. SYNTHROID [Concomitant]
  7. CORTICOSTEROID NOS [Concomitant]
  8. DRUG, UNSPECIFIED [Concomitant]
  9. PIROXICAM [Concomitant]
  10. GABAPENTIN [Concomitant]

REACTIONS (1)
  - OEDEMA PERIPHERAL [None]
